FAERS Safety Report 5210229-0 (Version None)
Quarter: 2006Q4

REPORT INFORMATION
  Report Type: 
  Country: None (occurrence: None)
  Receive Date: 20061130
  Receipt Date: 20060919
  Transmission Date: 20070319
  Serious: No
  Sender: FDA-Public Use
  Company Number: 06H-163-0310341-00

PATIENT
  Age: 29 Year
  Sex: Female
  Weight: 68.0396 kg

DRUGS (2)
  1. PROPOFOL [Suspect]
     Indication: SEDATION
     Dates: start: 20060918, end: 20060918
  2. LIDOCAINE [Concomitant]

REACTIONS (6)
  - ANGIONEUROTIC OEDEMA [None]
  - EYE PRURITUS [None]
  - PARAESTHESIA [None]
  - PRURITUS [None]
  - SWOLLEN TONGUE [None]
  - URTICARIA [None]
